FAERS Safety Report 18400126 (Version 1)
Quarter: 2020Q4

REPORT INFORMATION
  Report Type: Spontaneous
  Country: US (occurrence: US)
  Receive Date: 20201019
  Receipt Date: 20201019
  Transmission Date: 20210114
  Serious: No
  Sender: FDA-Public Use
  Company Number: US-ALLERGAN-1943010US

PATIENT
  Sex: Female

DRUGS (4)
  1. TRILEPTAL [Concomitant]
     Active Substance: OXCARBAZEPINE
     Indication: DEPRESSION
     Dosage: 300 MG
     Route: 048
  2. ZOLOFT [Concomitant]
     Active Substance: SERTRALINE HYDROCHLORIDE
     Indication: DEPRESSION
     Dosage: 100 MG
     Route: 048
  3. VRAYLAR [Suspect]
     Active Substance: CARIPRAZINE
     Indication: MOOD SWINGS
     Dosage: 1.5 MG, QD
     Route: 048
     Dates: start: 20190904
  4. VRAYLAR [Suspect]
     Active Substance: CARIPRAZINE
     Indication: DEPRESSION

REACTIONS (1)
  - Off label use [Unknown]
